FAERS Safety Report 15565863 (Version 1)
Quarter: 2018Q4

REPORT INFORMATION
  Report Type: Spontaneous
  Country: ES (occurrence: ES)
  Receive Date: 20181030
  Receipt Date: 20181030
  Transmission Date: 20190205
  Serious: Yes (Life-Threatening, Hospitalization)
  Sender: FDA-Public Use
  Company Number: ES-PFIZER INC-2018443169

PATIENT
  Age: 71 Year
  Sex: Female

DRUGS (1)
  1. METOTREXATO WYETH [Suspect]
     Active Substance: METHOTREXATE SODIUM
     Indication: RHEUMATOID ARTHRITIS
     Route: 048

REACTIONS (4)
  - Pyrexia [Recovered/Resolved]
  - Incorrect dosage administered [Recovered/Resolved]
  - Mucosal haemorrhage [Recovered/Resolved]
  - Pancytopenia [Recovered/Resolved]

NARRATIVE: CASE EVENT DATE: 2018
